FAERS Safety Report 19573244 (Version 1)
Quarter: 2021Q3

REPORT INFORMATION
  Report Type: Spontaneous
  Country: ES (occurrence: ES)
  Receive Date: 20210717
  Receipt Date: 20210717
  Transmission Date: 20211014
  Serious: Yes (Other)
  Sender: FDA-Public Use
  Company Number: ES-AUROBINDO-AUR-APL-2021-026623

PATIENT
  Age: 26 Year
  Sex: Male
  Weight: 80 kg

DRUGS (4)
  1. TRANXILIUM [Concomitant]
     Active Substance: CLORAZEPATE DIPOTASSIUM
     Indication: PRODUCT USED FOR UNKNOWN INDICATION
     Dosage: 10 MG TO 20 MG
     Route: 065
     Dates: start: 20201210
  2. SERTRALINE [Suspect]
     Active Substance: SERTRALINE HYDROCHLORIDE
     Indication: OBSESSIVE-COMPULSIVE DISORDER
     Dosage: 200 MILLIGRAM
     Route: 065
     Dates: start: 20201005
  3. REAGILA [Suspect]
     Active Substance: CARIPRAZINE
     Indication: OFF LABEL USE
     Dosage: 1 DOSAGE FORM
     Route: 048
     Dates: start: 20210212, end: 20210326
  4. REAGILA [Suspect]
     Active Substance: CARIPRAZINE
     Indication: OBSESSIVE-COMPULSIVE DISORDER

REACTIONS (5)
  - Hypertransaminasaemia [Recovering/Resolving]
  - Off label use [Recovered/Resolved]
  - Condition aggravated [Recovering/Resolving]
  - Gamma-glutamyltransferase increased [Recovering/Resolving]
  - Blood alkaline phosphatase increased [Recovering/Resolving]

NARRATIVE: CASE EVENT DATE: 20210326
